FAERS Safety Report 20279330 (Version 5)
Quarter: 2022Q2

REPORT INFORMATION
  Report Type: Report from Study
  Country: CA (occurrence: CA)
  Receive Date: 20220103
  Receipt Date: 20220503
  Transmission Date: 20220721
  Serious: Yes (Hospitalization, Other)
  Sender: FDA-Public Use
  Company Number: CA-JNJFOC-20211266712

PATIENT
  Age: 75 Year
  Sex: Male
  Weight: 61.5 kg

DRUGS (3)
  1. REMICADE [Suspect]
     Active Substance: INFLIXIMAB
     Indication: Ankylosing spondylitis
     Route: 042
     Dates: start: 20070328
  2. REMICADE [Suspect]
     Active Substance: INFLIXIMAB
     Dosage: EXPIRY DATE: 01-MAR-2024?PATIENT SWITCHED OVER TO INFLECTRA.
     Route: 042
     Dates: start: 20200920, end: 20220420
  3. COVID-19 VACCINE [Concomitant]
     Indication: Prophylaxis
     Dosage: PFIZER?ON-20-DEC-2021, COVID BOOSTER DOSE OF MODERNA.
     Route: 065

REACTIONS (4)
  - Thrombosis [Unknown]
  - Limb injury [Unknown]
  - Influenza [Unknown]
  - Localised infection [Unknown]

NARRATIVE: CASE EVENT DATE: 20211222
